FAERS Safety Report 4341304-0 (Version None)
Quarter: 2004Q1

REPORT INFORMATION
  Report Type: 
  Country: None (occurrence: None)
  Receive Date: 20040314
  Receipt Date: 20031020
  Transmission Date: 20041129
  Serious: Yes (Hospitalization)
  Sender: FDA-Public Use
  Company Number: 2003-BP-08830BP(0)

PATIENT
  Sex: Male

DRUGS (5)
  1. MOBIC [Suspect]
     Indication: BURSITIS
     Dosage: 15 MG (15 MG, 1 QD), PO
     Route: 048
     Dates: start: 20030801, end: 20030901
  2. ACETYLSALICYLIC ACID SRT [Concomitant]
  3. NORVASC [Concomitant]
  4. ZOCOR [Concomitant]
  5. INSULIN [Concomitant]

REACTIONS (2)
  - DYSPEPSIA [None]
  - GASTROINTESTINAL HAEMORRHAGE [None]
